FAERS Safety Report 15714882 (Version 1)
Quarter: 2018Q4

REPORT INFORMATION
  Report Type: Spontaneous
  Country: GB (occurrence: IT)
  Receive Date: 20181212
  Receipt Date: 20181212
  Transmission Date: 20190205
  Serious: Yes (Other)
  Sender: FDA-Public Use
  Company Number: IT-FRESENIUS KABI-FK201812543

PATIENT
  Age: 78 Year
  Sex: Female

DRUGS (1)
  1. IRINOTECAN (MANUFACTURER UNKNOWN) [Suspect]
     Active Substance: IRINOTECAN
     Indication: METASTASES TO PERITONEUM
     Route: 042
     Dates: start: 20180716, end: 20181003

REACTIONS (1)
  - Candida infection [Recovering/Resolving]

NARRATIVE: CASE EVENT DATE: 20181020
